FAERS Safety Report 5194759-6 (Version None)
Quarter: 2006Q4

REPORT INFORMATION
  Report Type: 
  Country: None (occurrence: None)
  Receive Date: 20061229
  Receipt Date: 20061221
  Transmission Date: 20070319
  Serious: No
  Sender: FDA-Public Use
  Company Number: KR-ELI_LILLY_AND_COMPANY-KR200612003778

PATIENT
  Age: 8 Year
  Sex: Male

DRUGS (2)
  1. ZYPREXA [Suspect]
     Dosage: 5 MG, EACH EVENING
     Route: 048
     Dates: start: 20060901
  2. METHYLPHENIDATE HCL [Concomitant]
     Indication: PSYCHOMOTOR HYPERACTIVITY
     Dosage: UNK UNK, EACH MORNING
     Route: 048
     Dates: end: 20061201

REACTIONS (3)
  - EPISTAXIS [None]
  - INTENTIONAL DRUG MISUSE [None]
  - MUCOSAL DRYNESS [None]
